FAERS Safety Report 6685386-X (Version None)
Quarter: 2010Q2

REPORT INFORMATION
  Report Type: 
  Country: None (occurrence: None)
  Receive Date: 20100416
  Receipt Date: 20091127
  Transmission Date: 20101027
  Serious: No
  Sender: FDA-Public Use
  Company Number: US-AMGEN-KDL377017

PATIENT
  Sex: Male

DRUGS (2)
  1. SENSIPAR [Suspect]
     Indication: HYPERPARATHYROIDISM SECONDARY
     Dates: start: 20090301
  2. EPOGEN [Suspect]
     Indication: DIALYSIS

REACTIONS (4)
  - BLOOD PARATHYROID HORMONE INCREASED [None]
  - DIARRHOEA [None]
  - HAEMOGLOBIN DECREASED [None]
  - HAEMORRHAGE [None]
